FAERS Safety Report 9169121 (Version 1)
Quarter: 2013Q1

REPORT INFORMATION
  Report Type: Spontaneous
  Country: US (occurrence: US)
  Receive Date: 20130318
  Receipt Date: 20130318
  Transmission Date: 20140127
  Serious: Yes (Other)
  Sender: FDA-Public Use
  Company Number: US-TEVA-391475USA

PATIENT
  Sex: Female

DRUGS (2)
  1. TRAZODONE [Suspect]
     Indication: INSOMNIA
  2. VITAMINS NOS [Concomitant]

REACTIONS (11)
  - Drug withdrawal syndrome [Unknown]
  - Feeling hot [Unknown]
  - Skin burning sensation [Unknown]
  - Choking [Unknown]
  - Drug ineffective [Unknown]
  - Insomnia [Unknown]
  - Anxiety [Not Recovered/Not Resolved]
  - Nausea [Unknown]
  - Feeling abnormal [Unknown]
  - Drug administration error [Unknown]
  - Vomiting [Unknown]
